FAERS Safety Report 17842517 (Version 2)
Quarter: 2020Q2

REPORT INFORMATION
  Report Type: Spontaneous
  Country: US (occurrence: US)
  Receive Date: 20200529
  Receipt Date: 20200622
  Transmission Date: 20200714
  Serious: No
  Sender: FDA-Public Use
  Company Number: US-BAYER-2020-090905

PATIENT
  Age: 5 Decade
  Sex: Female

DRUGS (1)
  1. CLIMARA PRO [Suspect]
     Active Substance: ESTRADIOL\LEVONORGESTREL
     Indication: MENOPAUSE
     Dosage: UNK
     Route: 062
     Dates: start: 201912

REACTIONS (5)
  - Incorrect dose administered by product [None]
  - Product dispensing issue [None]
  - Product physical issue [None]
  - Product adhesion issue [None]
  - Wrong technique in product usage process [None]
